FAERS Safety Report 9711371 (Version 2)
Quarter: 2013Q4

REPORT INFORMATION
  Report Type: Spontaneous
  Country: US (occurrence: US)
  Receive Date: 20131126
  Receipt Date: 20131126
  Transmission Date: 20140711
  Serious: No
  Sender: FDA-Public Use
  Company Number: US-BRISTOL-MYERS SQUIBB COMPANY-19217322

PATIENT
  Age: 66 Year
  Sex: Female
  Weight: 69.39 kg

DRUGS (2)
  1. BYETTA [Suspect]
     Indication: TYPE 2 DIABETES MELLITUS
     Dosage: BYETTA 2S0MCG/MI SMCG
     Dates: start: 20130823, end: 20130824
  2. GLYBURIDE [Suspect]
     Route: 048

REACTIONS (2)
  - Blood glucose decreased [Recovering/Resolving]
  - Nervousness [Recovering/Resolving]
